FAERS Safety Report 9934291 (Version 1)
Quarter: 2014Q1

REPORT INFORMATION
  Report Type: Spontaneous
  Country: US (occurrence: US)
  Receive Date: 20140228
  Receipt Date: 20140228
  Transmission Date: 20141002
  Serious: Yes (Hospitalization, Other)
  Sender: FDA-Public Use
  Company Number: US-BAXTER-2014BAX009199

PATIENT
  Sex: Female

DRUGS (12)
  1. DIANEAL LOW CALCIUM [Suspect]
     Indication: PERITONEAL DIALYSIS
     Route: 033
     Dates: end: 20140217
  2. DIANEAL LOW CALCIUM [Suspect]
     Route: 033
     Dates: end: 20140217
  3. DIANEAL LOW CALCIUM [Suspect]
     Route: 033
     Dates: start: 20140220
  4. DIANEAL LOW CALCIUM [Suspect]
     Indication: PERITONEAL DIALYSIS
     Route: 033
     Dates: end: 20140217
  5. DIANEAL LOW CALCIUM [Suspect]
     Route: 033
     Dates: end: 20140217
  6. DIANEAL LOW CALCIUM [Suspect]
     Route: 033
     Dates: start: 20140220
  7. DIANEAL PD2 [Suspect]
     Indication: PERITONEAL DIALYSIS
     Route: 033
     Dates: end: 20140217
  8. DIANEAL PD2 [Suspect]
     Route: 033
     Dates: start: 20140220
  9. DIANEAL PD2 [Suspect]
     Indication: PERITONEAL DIALYSIS
     Route: 033
     Dates: end: 20140217
  10. DIANEAL PD2 [Suspect]
     Route: 033
     Dates: start: 20140220
  11. DIANEAL LOW CALCIUM (ULTRABAG) [Suspect]
     Indication: PERITONEAL DIALYSIS
     Route: 033
     Dates: end: 20140217
  12. DIANEAL LOW CALCIUM (ULTRABAG) [Suspect]
     Route: 033
     Dates: start: 20140220

REACTIONS (3)
  - Anaemia [Recovered/Resolved]
  - Peritonitis [Recovering/Resolving]
  - Fluid overload [Recovered/Resolved]
